FAERS Safety Report 19813778 (Version 2)
Quarter: 2021Q4

REPORT INFORMATION
  Report Type: Report from Study
  Country: None (occurrence: TN)
  Receive Date: 20210909
  Receipt Date: 20211014
  Transmission Date: 20220304
  Serious: Yes (Hospitalization)
  Sender: FDA-Public Use
  Company Number: TN-ABBVIE-21K-160-4069904-00

PATIENT
  Age: 51 Year
  Sex: Female

DRUGS (9)
  1. HUMIRA [Suspect]
     Active Substance: ADALIMUMAB
     Indication: Crohn^s disease
     Route: 058
     Dates: start: 20140428, end: 20190112
  2. HUMIRA [Suspect]
     Active Substance: ADALIMUMAB
     Route: 058
     Dates: start: 201904, end: 20210224
  3. HUMIRA [Suspect]
     Active Substance: ADALIMUMAB
     Route: 058
     Dates: start: 20210318, end: 20210815
  4. HUMIRA [Suspect]
     Active Substance: ADALIMUMAB
     Route: 058
     Dates: start: 20210911, end: 20210926
  5. IMODIUM [Concomitant]
     Active Substance: LOPERAMIDE HYDROCHLORIDE
     Indication: Diarrhoea
     Route: 048
  6. SMECTA [Concomitant]
     Active Substance: MONTMORILLONITE
     Indication: Diarrhoea
     Route: 048
  7. RACECADOTRIL [Concomitant]
     Active Substance: RACECADOTRIL
     Indication: Diarrhoea
     Route: 048
  8. PENTASA [Concomitant]
     Active Substance: MESALAMINE
     Indication: Crohn^s disease
     Route: 048
  9. AZATHIOPRINE SODIUM [Concomitant]
     Active Substance: AZATHIOPRINE SODIUM
     Indication: Crohn^s disease
     Route: 048

REACTIONS (3)
  - Abdominal hernia [Recovered/Resolved]
  - Cholecystectomy [Recovered/Resolved]
  - Postoperative wound infection [Unknown]

NARRATIVE: CASE EVENT DATE: 20201001
